FAERS Safety Report 4927119-0 (Version None)
Quarter: 2006Q1

REPORT INFORMATION
  Report Type: 
  Country: None (occurrence: None)
  Receive Date: 20060228
  Receipt Date: 20060221
  Transmission Date: 20060701
  Serious: Yes (Hospitalization)
  Sender: FDA-Public Use
  Company Number: US-KINGPHARMUSA00001-K200600241

PATIENT
  Age: 74 Year

DRUGS (12)
  1. ALTACE [Suspect]
     Indication: MYOCARDIAL INFARCTION
     Dosage: 10 MG, QD
     Route: 048
     Dates: end: 20060123
  2. TRIMETHOPRIM [Suspect]
     Indication: URINARY TRACT INFECTION
     Dosage: 200 MG, QD
     Route: 048
     Dates: end: 20060123
  3. NITROFURANTOIN [Suspect]
     Indication: URINARY TRACT INFECTION
     Dosage: 200 MG, QD
     Route: 048
     Dates: end: 20060123
  4. AMLODIPINE [Concomitant]
     Indication: PROPHYLAXIS
     Dosage: 10 MG, UNK
     Route: 048
  5. CLOPIDOGREL [Concomitant]
     Indication: PROPHYLAXIS
     Dosage: 75 MG, UNK
     Route: 048
  6. ATENOLOL [Concomitant]
     Indication: PROPHYLAXIS
     Dosage: 100 MG, UNK
     Route: 048
  7. HUMULIN M3 [Concomitant]
     Indication: DIABETES MELLITUS
     Dosage: UNK, BID
     Route: 058
  8. SIMVASTATIN [Concomitant]
     Indication: PROPHYLAXIS
     Dosage: 40 MG, UNK
     Route: 048
  9. FUROSEMIDE [Concomitant]
     Indication: PROPHYLAXIS
     Dosage: 40 MG, UNK
     Route: 048
  10. DIPYRIDAMOLE [Concomitant]
     Indication: PROPHYLAXIS
     Dosage: 400 MG, UNK
     Route: 048
  11. METFORMIN [Concomitant]
     Indication: DIABETES MELLITUS
     Dosage: 1,000 MG, UNK
     Route: 048
  12. ZOPICLONE [Concomitant]
     Dosage: 7.5 MG, UNK
     Route: 048

REACTIONS (2)
  - DIARRHOEA HAEMORRHAGIC [None]
  - HYPERKALAEMIA [None]
